FAERS Safety Report 24833989 (Version 2)
Quarter: 2025Q1

REPORT INFORMATION
  Report Type: Report from Study
  Country: CA (occurrence: CA)
  Receive Date: 20250112
  Receipt Date: 20250307
  Transmission Date: 20250408
  Serious: Yes (Other)
  Sender: JOHNSON AND JOHNSON
  Company Number: CA-JNJFOC-20241112159

PATIENT
  Age: 20 Year
  Sex: Male
  Weight: 58.97 kg

DRUGS (1)
  1. REMICADE [Suspect]
     Active Substance: INFLIXIMAB
     Indication: Crohn^s disease
     Dosage: BATCH NUMBER;24E127 AND EXPIRY DATE;30-MAY-2027
     Route: 041

REACTIONS (3)
  - Vomiting [Recovered/Resolved]
  - Infusion related reaction [Unknown]
  - Heart rate increased [Unknown]

NARRATIVE: CASE EVENT DATE: 20241104
